FAERS Safety Report 7006184-3 (Version None)
Quarter: 2010Q3

REPORT INFORMATION
  Report Type: 
  Country: None (occurrence: None)
  Receive Date: 20100921
  Receipt Date: 20100910
  Transmission Date: 20110219
  Serious: Yes (Other)
  Sender: FDA-Public Use
  Company Number: JP-PFIZER INC-2010117302

PATIENT
  Age: 58 Year
  Sex: Male
  Weight: 70 kg

DRUGS (7)
  1. SERTRALINE HYDROCHLORIDE [Suspect]
     Dosage: 50 MG/DAY
  2. WARFARIN [Interacting]
     Indication: ATRIAL FIBRILLATION
     Dosage: 2.0 MG/DAY
  3. PROPAFENONE [Concomitant]
     Dosage: 450 MG/DAY
  4. TELMISARTAN [Concomitant]
     Dosage: 40 MG/DAY
  5. SULPIRIDE [Concomitant]
     Indication: ANXIETY DISORDER
     Dosage: 100 MG/DAY
  6. FLUNITRAZEPAM [Concomitant]
     Indication: ANXIETY DISORDER
     Dosage: 1 MG/DAY
  7. TRIAZOLAM [Concomitant]
     Indication: ANXIETY DISORDER
     Dosage: 0.25 MG/DAY

REACTIONS (3)
  - DRUG INTERACTION [None]
  - HAEMATURIA [None]
  - INTERNATIONAL NORMALISED RATIO INCREASED [None]
